FAERS Safety Report 16060421 (Version 1)
Quarter: 2019Q1

REPORT INFORMATION
  Report Type: Spontaneous
  Country: US (occurrence: US)
  Receive Date: 20190312
  Receipt Date: 20190312
  Transmission Date: 20190418
  Serious: Yes (Death, Hospitalization, Other)
  Sender: FDA-Public Use
  Company Number: US-AUROBINDO-AUR-APL-2019-012536

PATIENT

DRUGS (5)
  1. VALGANCICLOVIR. [Suspect]
     Active Substance: VALGANCICLOVIR
     Indication: PRODUCT USED FOR UNKNOWN INDICATION
     Dosage: UNK
     Route: 065
  2. FOSCARNET [Suspect]
     Active Substance: FOSCARNET
     Indication: PRODUCT USED FOR UNKNOWN INDICATION
     Dosage: UNK
     Route: 065
  3. IMMUNE GLOBULIN NOS [Suspect]
     Active Substance: IMMUNE GLOBULIN NOS
     Indication: PRODUCT USED FOR UNKNOWN INDICATION
     Dosage: UNK
     Route: 065
  4. BUDESONIDE. [Suspect]
     Active Substance: BUDESONIDE
     Indication: PRODUCT USED FOR UNKNOWN INDICATION
     Dosage: UNK
     Route: 048
  5. GANCICLOVIR. [Suspect]
     Active Substance: GANCICLOVIR
     Indication: PRODUCT USED FOR UNKNOWN INDICATION
     Dosage: UNK
     Route: 065

REACTIONS (22)
  - Dyspnoea [Fatal]
  - Constipation [Fatal]
  - Paralysis [Fatal]
  - Hypokinesia [Fatal]
  - Botulism [Fatal]
  - Cytomegalovirus viraemia [Recovering/Resolving]
  - Vision blurred [Fatal]
  - Ophthalmoplegia [Fatal]
  - Pupillary light reflex tests [Fatal]
  - Brain herniation [Fatal]
  - Brain death [Fatal]
  - Dysarthria [Fatal]
  - Eyelid ptosis [Fatal]
  - Obstructive airways disorder [Fatal]
  - Cerebral haemorrhage [Fatal]
  - Abdominal pain [Fatal]
  - Dysphagia [Fatal]
  - Cardiac arrest [Fatal]
  - Nausea [Fatal]
  - Neuropathy peripheral [Fatal]
  - Respiratory failure [Unknown]
  - Vomiting [Fatal]
